FAERS Safety Report 24550994 (Version 4)
Quarter: 2025Q1

REPORT INFORMATION
  Report Type: Spontaneous
  Country: US (occurrence: US)
  Receive Date: 20241025
  Receipt Date: 20250117
  Transmission Date: 20250408
  Serious: No
  Sender: PFIZER
  Company Number: US-PFIZER INC-202400282458

PATIENT
  Age: 12 Year
  Sex: Male

DRUGS (2)
  1. GENOTROPIN [Suspect]
     Active Substance: SOMATROPIN
     Indication: Short stature
     Dosage: (1.4MG INJECTION ONCE A DAY)
     Dates: start: 20241015
  2. GENOTROPIN [Suspect]
     Active Substance: SOMATROPIN
     Dosage: (1.4MG INJECTION ONCE A DAY)
     Dates: start: 20241015

REACTIONS (1)
  - Device leakage [Unknown]
